FAERS Safety Report 14095168 (Version 2)
Quarter: 2017Q4

REPORT INFORMATION
  Report Type: Spontaneous
  Country: FR (occurrence: FR)
  Receive Date: 20171016
  Receipt Date: 20171103
  Transmission Date: 20180321
  Serious: Yes (Disabling)
  Sender: FDA-Public Use
  Company Number: FR-GILEAD-2017-0298856

PATIENT
  Age: 65 Year
  Sex: Female
  Weight: 52 kg

DRUGS (14)
  1. IXEL [Concomitant]
     Active Substance: MILNACIPRAN HYDROCHLORIDE
     Dosage: 50 MG, BID
     Route: 048
     Dates: start: 2009
  2. KETOPROFENE EG [Concomitant]
     Dosage: 100 MG, QD
  3. TRANSIPEG                          /00754501/ [Concomitant]
     Active Substance: POLYETHYLENE GLYCOL 3350
     Dosage: 1 DF, QD
     Route: 048
     Dates: start: 2009
  4. XANAX [Concomitant]
     Active Substance: ALPRAZOLAM
     Dosage: 0.5 MG, UNK
     Route: 048
     Dates: start: 2009
  5. PROPANOLOL                         /00030001/ [Concomitant]
     Active Substance: PROPRANOLOL HYDROCHLORIDE
     Dosage: 10 MG, QD
  6. SOLIAN [Concomitant]
     Active Substance: AMISULPRIDE
     Dosage: 1 DF, QD
     Dates: end: 2017
  7. BECLOMETHASONE                     /00212601/ [Concomitant]
     Dosage: 2 DF, QD
     Dates: start: 20170928, end: 20171008
  8. GENVOYA [Suspect]
     Active Substance: COBICISTAT\ELVITEGRAVIR\EMTRICITABINE\TENOFOVIR ALAFENAMIDE FUMARATE
     Indication: PRODUCT USED FOR UNKNOWN INDICATION
     Dosage: 1 DF, QD
     Route: 065
     Dates: start: 201702
  9. STILNOX [Concomitant]
     Active Substance: ZOLPIDEM TARTRATE
     Dosage: 10 MG, QD
     Route: 048
     Dates: start: 2009
  10. GYDRELLE [Concomitant]
     Dosage: UNK
     Route: 067
     Dates: start: 2009
  11. DOLIPRANE [Concomitant]
     Active Substance: ACETAMINOPHEN
     Dosage: 1000 MG, TID
  12. TROPHIGIL [Concomitant]
     Active Substance: ESTRIOL
     Dosage: 1 DF, QD
     Route: 067
     Dates: start: 2009
  13. OROCAL                             /00944201/ [Concomitant]
     Active Substance: CALCIUM CARBONATE\CHOLECALCIFEROL
     Dosage: 1 DF, QD
     Route: 048
     Dates: start: 2009
  14. AMISULPRIDE EG [Concomitant]
     Dosage: 100 MG, QD
     Dates: start: 20170918

REACTIONS (4)
  - Migraine [Not Recovered/Not Resolved]
  - Nausea [Not Recovered/Not Resolved]
  - Fall [Unknown]
  - Vertigo [Recovered/Resolved]

NARRATIVE: CASE EVENT DATE: 20170208
